FAERS Safety Report 14583639 (Version 1)
Quarter: 2018Q1

REPORT INFORMATION
  Report Type: Spontaneous
  Country: US (occurrence: US)
  Receive Date: 20180228
  Receipt Date: 20180228
  Transmission Date: 20180509
  Serious: No
  Sender: FDA-Public Use
  Company Number: US-PFIZER INC-2018078694

PATIENT
  Age: 65 Year
  Sex: Female

DRUGS (3)
  1. CITRACAL + D3 [Concomitant]
     Indication: MINERAL SUPPLEMENTATION
     Dosage: 1 DF, CYCLIC (TAKES 1 TABLET BY MOUTH ABOUT EVERY 4 DAYS WITH HER MORNING EGG AND COFFEE)
     Route: 048
     Dates: start: 2017
  2. ADVIL [Suspect]
     Active Substance: IBUPROFEN
     Indication: HEADACHE
     Dosage: 400 MG, AS NEEDED (TAKES 2 TABLETS BY MOUTH AS NEEDED, SHE DOES NOT TAKE IT EVERYDAY)
     Route: 048
  3. MULTIVITAMIN WOMENS VITACRAVES GUMMIES [Concomitant]
     Indication: VITAMIN SUPPLEMENTATION
     Dosage: 2 DF, 1X/DAY (2 GUMMIES ONCE A DAY IN THE MORNING)
     Route: 048

REACTIONS (3)
  - Nausea [Not Recovered/Not Resolved]
  - Weight fluctuation [Unknown]
  - Drug effect decreased [Not Recovered/Not Resolved]

NARRATIVE: CASE EVENT DATE: 201802
